FAERS Safety Report 8377073-7 (Version None)
Quarter: 2012Q2

REPORT INFORMATION
  Report Type: 
  Country: None (occurrence: None)
  Receive Date: 20120522
  Receipt Date: 20120510
  Transmission Date: 20120825
  Serious: Yes (Hospitalization)
  Sender: FDA-Public Use
  Company Number: US-ELI_LILLY_AND_COMPANY-US201204009253

PATIENT
  Sex: Male

DRUGS (9)
  1. FORTEO [Suspect]
     Dosage: 20 UG, QD
  2. DILTIAZEM [Concomitant]
     Dosage: 180 MG, UNK
  3. HYDROCODONE [Concomitant]
  4. FORTEO [Suspect]
     Dosage: 20 UG, QD
  5. WARFARIN SODIUM [Concomitant]
  6. FORTEO [Suspect]
     Indication: OSTEOPOROSIS
     Dosage: 20 UG, QD
     Dates: start: 20120308
  7. RANITIDINE [Concomitant]
     Dosage: UNK, TID
  8. MULTAQ [Concomitant]
  9. FUROSEMIDE [Concomitant]

REACTIONS (3)
  - COMPRESSION FRACTURE [None]
  - RASH [None]
  - BACK PAIN [None]
